FAERS Safety Report 24060372 (Version 1)
Quarter: 2024Q3

REPORT INFORMATION
  Report Type: Spontaneous
  Country: US (occurrence: US)
  Receive Date: 20240708
  Receipt Date: 20240708
  Transmission Date: 20241016
  Serious: Yes (Other)
  Sender: SANOFI AVENTIS
  Company Number: US-SA-SAC20240705000445

PATIENT
  Sex: Female

DRUGS (1)
  1. DUPIXENT [Suspect]
     Active Substance: DUPILUMAB
     Indication: Dermatitis atopic
     Dosage: 300 MG, QOW
     Route: 058

REACTIONS (6)
  - Diabetes mellitus [Unknown]
  - Initial insomnia [Unknown]
  - Sleep apnoea syndrome [Unknown]
  - Depressed mood [Unknown]
  - Positive airway pressure therapy [Unknown]
  - Back disorder [Unknown]
